FAERS Safety Report 9519086 (Version 2)
Quarter: 2013Q3

REPORT INFORMATION
  Report Type: Spontaneous
  Country: US (occurrence: US)
  Receive Date: 20130912
  Receipt Date: 20130912
  Transmission Date: 20140515
  Serious: Yes (Hospitalization, Other)
  Sender: FDA-Public Use
  Company Number: US-PFIZER INC-2013130030

PATIENT
  Age: 38 Year
  Sex: Female

DRUGS (2)
  1. DILANTIN [Suspect]
     Indication: GRAND MAL CONVULSION
     Dosage: 50 MG, 1X/DAY (BEDTIME)
     Route: 048
     Dates: start: 20060221, end: 20060322
  2. DILANTIN KAPSEAL [Suspect]
     Indication: GRAND MAL CONVULSION
     Dosage: 300 MG, 1X/DAY (BEDTIME)
     Route: 048
     Dates: start: 20060221, end: 20060322

REACTIONS (2)
  - Stevens-Johnson syndrome [Unknown]
  - Toxic epidermal necrolysis [Unknown]
